FAERS Safety Report 19259350 (Version 1)
Quarter: 2021Q2

REPORT INFORMATION
  Report Type: Spontaneous
  Country: IT (occurrence: IT)
  Receive Date: 20210514
  Receipt Date: 20210514
  Transmission Date: 20210717
  Serious: Yes (Other)
  Sender: FDA-Public Use
  Company Number: IT-MALLINCKRODT PHARMACEUTICALS-T202102064

PATIENT

DRUGS (1)
  1. UVADEX [Suspect]
     Active Substance: METHOXSALEN
     Indication: GRAFT VERSUS HOST DISEASE
     Dosage: UNK (EXTRACORPOREAL)
     Route: 050

REACTIONS (4)
  - Loss of consciousness [Recovered/Resolved]
  - Product use in unapproved indication [Not Recovered/Not Resolved]
  - Wrong technique in device usage process [Unknown]
  - Dizziness [Recovered/Resolved]
